FAERS Safety Report 7465316-3 (Version None)
Quarter: 2011Q2

REPORT INFORMATION
  Report Type: 
  Country: None (occurrence: None)
  Receive Date: 20110509
  Receipt Date: 20110503
  Transmission Date: 20111010
  Serious: Yes (Death)
  Sender: FDA-Public Use
  Company Number: DE-ASTRAZENECA-2011SE25477

PATIENT
  Age: 75 Year
  Sex: Male

DRUGS (10)
  1. SIFROL [Concomitant]
     Route: 048
  2. LORAZEPAM [Suspect]
     Route: 048
     Dates: start: 20070223
  3. SPIRONOLACTONE [Concomitant]
     Route: 048
  4. PARACETAMOL [Concomitant]
     Route: 048
     Dates: start: 20070225, end: 20070225
  5. LORAZEPAM [Suspect]
     Route: 048
     Dates: start: 20070222, end: 20070222
  6. MELNEURIN [Suspect]
     Route: 048
     Dates: start: 20070221, end: 20070221
  7. FUROSEMIDE [Concomitant]
     Route: 048
  8. NACOM [Concomitant]
     Dosage: 400 MG + 200 MG RETARD PER DAY
     Route: 048
  9. SEROQUEL [Suspect]
     Route: 048
     Dates: start: 20070219
  10. MELNEURIN [Suspect]
     Route: 048
     Dates: start: 20070222, end: 20070222

REACTIONS (1)
  - PNEUMONIA [None]
